FAERS Safety Report 14083117 (Version 1)
Quarter: 2017Q4

REPORT INFORMATION
  Report Type: Spontaneous
  Country: DE (occurrence: DE)
  Receive Date: 20171013
  Receipt Date: 20171013
  Transmission Date: 20180321
  Serious: Yes (Other)
  Sender: FDA-Public Use
  Company Number: DE-TEVA-813858GER

PATIENT
  Age: 73 Year
  Sex: Male

DRUGS (3)
  1. RAMIPRIL RATIOPHARM COMP 5MG/25MG TABLETS [Suspect]
     Active Substance: RAMIPRIL
     Dosage: 1 DSF = 5 MG RAMIPRIL, 25 MG HYDROCHLOROTHIAZIDE
     Route: 048
  2. ASS RATIOPHARM TAH 100 MG TABLETS [Interacting]
     Active Substance: ASPIRIN
     Route: 048
  3. NAFTI-RATIOPHARM 100 MG PROLONGED-RELEASED CAPSULES [Interacting]
     Active Substance: NAFRONYL OXALATE
     Route: 048

REACTIONS (2)
  - Lip and/or oral cavity cancer [Unknown]
  - Drug interaction [Unknown]

NARRATIVE: CASE EVENT DATE: 2017
